FAERS Safety Report 13939048 (Version 1)
Quarter: 2017Q3

REPORT INFORMATION
  Report Type: Spontaneous
  Country: US (occurrence: US)
  Receive Date: 20170906
  Receipt Date: 20170906
  Transmission Date: 20171127
  Serious: No
  Sender: FDA-Public Use
  Company Number: None

PATIENT
  Sex: Male

DRUGS (2)
  1. CORDRAN [Suspect]
     Active Substance: FLURANDRENOLIDE
  2. MOMETASONE CREAM [Suspect]
     Active Substance: MOMETASONE

REACTIONS (1)
  - Treatment failure [None]
